FAERS Safety Report 12630094 (Version 5)
Quarter: 2016Q3

REPORT INFORMATION
  Report Type: Spontaneous
  Country: US (occurrence: US)
  Receive Date: 20160808
  Receipt Date: 20160929
  Transmission Date: 20161109
  Serious: Yes (Hospitalization, Other)
  Sender: FDA-Public Use
  Company Number: US-JNJFOC-20160723318

PATIENT
  Age: 76 Year
  Sex: Female
  Weight: 76.66 kg

DRUGS (27)
  1. METHOTREXATE. [Concomitant]
     Active Substance: METHOTREXATE
     Indication: ARTHRITIS
     Dosage: 5 TABLETS A.M AND 5 TABLETS P.M WEEKLY
     Route: 065
  2. NEXIUM [Concomitant]
     Active Substance: ESOMEPRAZOLE MAGNESIUM
     Dosage: 1 A.M
     Route: 065
  3. HYDROMORPHONE [Concomitant]
     Active Substance: HYDROMORPHONE
     Dosage: WHEN NEEDED (PRN)
     Route: 065
  4. SIMPONI ARIA [Suspect]
     Active Substance: GOLIMUMAB
     Indication: PALINDROMIC RHEUMATISM
     Route: 042
     Dates: start: 20160425
  5. SIMPONI ARIA [Suspect]
     Active Substance: GOLIMUMAB
     Indication: PALINDROMIC RHEUMATISM
     Route: 042
     Dates: start: 20160718
  6. BUPROPION HCL [Concomitant]
     Active Substance: BUPROPION HYDROCHLORIDE
     Indication: PAIN
     Dosage: 1 A.M
     Route: 065
  7. IBUPROFEN. [Concomitant]
     Active Substance: IBUPROFEN
     Dosage: 2 TO 3 IN AM?? 2 A.M - 2 P.M
     Route: 065
  8. CRANBERRY. [Concomitant]
     Active Substance: CRANBERRY
     Dosage: 2 P.M
     Route: 065
  9. SIMPONI ARIA [Suspect]
     Active Substance: GOLIMUMAB
     Indication: RHEUMATOID ARTHRITIS
     Route: 042
     Dates: start: 20160526
  10. SIMPONI ARIA [Suspect]
     Active Substance: GOLIMUMAB
     Indication: RHEUMATOID ARTHRITIS
     Route: 042
     Dates: start: 20160425
  11. PREDNISONE. [Suspect]
     Active Substance: PREDNISONE
     Indication: PRODUCT USED FOR UNKNOWN INDICATION
     Dosage: 1 A.M
     Route: 065
  12. BUPROPION HCL [Concomitant]
     Active Substance: BUPROPION HYDROCHLORIDE
     Indication: DEPRESSION
     Dosage: 1 A.M
     Route: 065
  13. IBANDRONATE SODIUM. [Concomitant]
     Active Substance: IBANDRONATE SODIUM
     Indication: BONE DEVELOPMENT ABNORMAL
     Route: 065
  14. SIMVASTATIN. [Concomitant]
     Active Substance: SIMVASTATIN
     Indication: BLOOD CHOLESTEROL
     Route: 065
  15. TRIAMCINOLONE [Concomitant]
     Active Substance: TRIAMCINOLONE
     Route: 065
  16. FISH OIL [Concomitant]
     Active Substance: FISH OIL
     Dosage: 1 A.M - 1 P.M
     Route: 065
  17. OCUVITE [Concomitant]
     Active Substance: VITAMINS
     Indication: VITAMIN SUPPLEMENTATION
     Route: 065
  18. SIMPONI ARIA [Suspect]
     Active Substance: GOLIMUMAB
     Indication: PALINDROMIC RHEUMATISM
     Route: 042
     Dates: start: 20160526
  19. CALCIUM [Concomitant]
     Active Substance: CALCIUM
     Dosage: 1 A.M - 1 P.M
     Route: 065
  20. AMLODIPINE [Concomitant]
     Active Substance: AMLODIPINE BESYLATE
     Dosage: 1/2 A.M
     Route: 065
  21. LOSARTAN. [Concomitant]
     Active Substance: LOSARTAN
     Dosage: 1 A.M
     Route: 065
  22. ATORVASTATIN [Concomitant]
     Active Substance: ATORVASTATIN
     Dosage: 1 P.M
     Route: 065
  23. SIMPONI ARIA [Suspect]
     Active Substance: GOLIMUMAB
     Indication: RHEUMATOID ARTHRITIS
     Route: 042
     Dates: start: 20160718
  24. FENTANYL. [Concomitant]
     Active Substance: FENTANYL
     Indication: PAIN
     Route: 065
     Dates: start: 2013
  25. ECONAZOLE [Concomitant]
     Active Substance: ECONAZOLE
     Indication: FUNGAL SKIN INFECTION
     Route: 065
  26. FOLIC ACID. [Concomitant]
     Active Substance: FOLIC ACID
     Dosage: 1 A.M
     Route: 065
  27. BACTROBAN [Concomitant]
     Active Substance: MUPIROCIN\MUPIROCIN CALCIUM
     Route: 065

REACTIONS (11)
  - Rheumatoid arthritis [Not Recovered/Not Resolved]
  - Macular degeneration [Not Recovered/Not Resolved]
  - Palindromic rheumatism [Not Recovered/Not Resolved]
  - Skin exfoliation [Not Recovered/Not Resolved]
  - Off label use [Unknown]
  - Product use issue [Unknown]
  - Fatigue [Not Recovered/Not Resolved]
  - Influenza like illness [Unknown]
  - Weight increased [Recovered/Resolved]
  - Nausea [Unknown]
  - Urinary tract infection [Unknown]

NARRATIVE: CASE EVENT DATE: 2016
